FAERS Safety Report 6386974-0 (Version None)
Quarter: 2009Q4

REPORT INFORMATION
  Report Type: 
  Country: None (occurrence: None)
  Receive Date: 20091002
  Receipt Date: 20090923
  Transmission Date: 20100525
  Serious: Yes (Other)
  Sender: FDA-Public Use
  Company Number: US-WATSON-2009-07879

PATIENT
  Sex: Male

DRUGS (5)
  1. FENTANYL-100 [Suspect]
     Indication: INJURY
     Dosage: 1 PATCH, Q 72 HOURS (USED TOTAL OF 2 PATCHES)
     Route: 062
     Dates: start: 20090911, end: 20090911
  2. FENTANYL-100 [Suspect]
     Indication: BACK PAIN
  3. FENTANYL-100 [Suspect]
     Indication: GASTROINTESTINAL DISORDER
  4. SOMA [Concomitant]
     Indication: BACK PAIN
     Dosage: UNK
     Route: 048
  5. TYLENOL (CAPLET) [Concomitant]
     Indication: HEADACHE
     Dosage: PRN
     Route: 048

REACTIONS (9)
  - DIZZINESS [None]
  - EYE ROLLING [None]
  - LOSS OF CONSCIOUSNESS [None]
  - MALAISE [None]
  - MEMORY IMPAIRMENT [None]
  - NAUSEA [None]
  - OVERDOSE [None]
  - POSTURE ABNORMAL [None]
  - UNRESPONSIVE TO STIMULI [None]
